FAERS Safety Report 3721034 (Version 3)
Quarter: 2015Q2

REPORT INFORMATION
  Report Type: Spontaneous
  Country: JP (occurrence: JP)
  Receive Date: 20011005
  Receipt Date: 20150428
  Transmission Date: 20150821
  Serious: Yes (Disabling, Other)
  Sender: FDA-Public Use
  Company Number: PHBS2001JP09786

PATIENT
  Age: 70 Year
  Sex: Male

DRUGS (14)
  1. EXCEGRAN [Concomitant]
     Active Substance: ZONISAMIDE
     Dates: start: 20010509
  2. PERDIPINE [Concomitant]
     Active Substance: NICARDIPINE HYDROCHLORIDE
     Dates: start: 20010819
  3. BIOFERMIN [Concomitant]
     Active Substance: BACILLUS SUBTILIS\LACTOBACILLUS ACIDOPHILUS\STREPTOCOCCUS FAECAIS
     Dates: start: 20010603, end: 20011005
  4. ALBUMIN TANNATE [Concomitant]
     Active Substance: ALBUMIN BOVINE\TANNIC ACID
     Dates: start: 20010603, end: 20011005
  5. INCREMIN [Concomitant]
     Active Substance: FERRIC PYROPHOSPHATE
     Dates: start: 20010709, end: 20011008
  6. DIOVAN [Suspect]
     Active Substance: VALSARTAN
     Indication: HYPERTENSION
     Dosage: 80 MG/DAY
     Route: 048
     Dates: start: 20010905, end: 20010906
  7. DIOVAN [Suspect]
     Active Substance: VALSARTAN
     Route: 048
     Dates: start: 20010906, end: 20010916
  8. ALDACTONE [Concomitant]
     Active Substance: SPIRONOLACTONE
     Dates: start: 20010712
  9. HYDROCORTISONE. [Concomitant]
     Active Substance: HYDROCORTISONE
     Dates: start: 20010711
  10. DIOVAN [Suspect]
     Active Substance: VALSARTAN
     Dosage: 40 MG/DAY
     Route: 048
     Dates: start: 20010906, end: 20010917
  11. DIOVAN [Suspect]
     Active Substance: VALSARTAN
     Route: 048
     Dates: start: 20010905, end: 20010905
  12. DEPAKINE [Concomitant]
     Active Substance: VALPROATE SODIUM
     Dates: start: 20010511
  13. ASPARA K [Concomitant]
     Active Substance: POTASSIUM ASPARTATE
  14. SODIUM CHLORIDE. [Concomitant]
     Active Substance: SODIUM CHLORIDE
     Dates: start: 20010711

REACTIONS (6)
  - Blood pressure decreased [Recovering/Resolving]
  - Seizure [Recovered/Resolved]
  - Arrhythmia [Recovered/Resolved]
  - Respiratory arrest [Recovered/Resolved]
  - Respiratory failure [Recovered/Resolved]
  - Loss of consciousness [Recovered/Resolved]

NARRATIVE: CASE EVENT DATE: 20010905
